FAERS Safety Report 6550378-8 (Version None)
Quarter: 2010Q1

REPORT INFORMATION
  Report Type: 
  Country: None (occurrence: None)
  Receive Date: 20100125
  Receipt Date: 20100115
  Transmission Date: 20100710
  Serious: Yes (Hospitalization)
  Sender: FDA-Public Use
  Company Number: BR-SANOFI-AVENTIS-2010SA002613

PATIENT
  Sex: Male
  Weight: 75 kg

DRUGS (13)
  1. LANTUS [Suspect]
     Indication: TYPE 2 DIABETES MELLITUS
     Route: 058
  2. METFORMIN [Concomitant]
     Indication: TYPE 2 DIABETES MELLITUS
     Route: 048
     Dates: start: 19980101
  3. GLIMEPIRIDE [Concomitant]
     Indication: TYPE 2 DIABETES MELLITUS
     Dosage: 1 TABLET
     Route: 048
     Dates: start: 20060101
  4. CARVEDILOL [Concomitant]
     Dosage: 2 TABLETS
     Route: 048
     Dates: start: 19990101
  5. WARFARIN [Concomitant]
     Indication: ANTICOAGULANT THERAPY
     Dosage: 1 TABLET
     Route: 048
     Dates: start: 19990101
  6. LASIX [Concomitant]
     Indication: DIURETIC THERAPY
     Dosage: 1 TABLET
     Route: 048
     Dates: start: 19990101
  7. CAPTOPRIL [Concomitant]
     Indication: HYPERTENSION
     Dosage: 3 TABLETS
     Route: 048
     Dates: start: 19990101
  8. ISORDIL [Concomitant]
     Indication: ANGINA PECTORIS
     Dosage: 2 TABLETS
     Route: 048
     Dates: start: 19990101
  9. AAS [Concomitant]
     Dosage: 2 TABLETS
     Route: 048
     Dates: start: 19990101
  10. SIMVASTATIN [Concomitant]
     Dosage: 1 TABLET
     Route: 048
     Dates: start: 19990101
  11. DIGOXIN [Concomitant]
     Dosage: 1 TABLET
     Route: 048
     Dates: start: 19990101
  12. CLOPIDOGREL SULFATE [Concomitant]
     Indication: ANGIOPLASTY
     Dosage: 1 TABLET
     Route: 048
     Dates: start: 20090101
  13. ALDACTONE [Concomitant]
     Indication: DIURETIC THERAPY
     Dosage: 1 TABLET
     Route: 048
     Dates: start: 20000101

REACTIONS (2)
  - BLOOD GLUCOSE INCREASED [None]
  - CARDIAC DISORDER [None]
